FAERS Safety Report 7150724-0 (Version None)
Quarter: 2010Q4

REPORT INFORMATION
  Report Type: 
  Country: None (occurrence: None)
  Receive Date: 20101210
  Receipt Date: 20101207
  Transmission Date: 20110411
  Serious: Yes (Other)
  Sender: FDA-Public Use
  Company Number: US-JNJCH-2010023322

PATIENT
  Age: 70 Year
  Sex: Female

DRUGS (1)
  1. LISTERINE TOTAL CARE ANTICAVITY MOUTHWASH [Suspect]
     Indication: ARTHROPOD BITE
     Dosage: TEXT:COTTON BALL DABS ONCE
     Route: 061

REACTIONS (5)
  - CELLULITIS [None]
  - FEELING COLD [None]
  - INCORRECT ROUTE OF DRUG ADMINISTRATION [None]
  - OFF LABEL USE [None]
  - TREMOR [None]
